FAERS Safety Report 5125960-5 (Version None)
Quarter: 2006Q3

REPORT INFORMATION
  Report Type: 
  Country: None (occurrence: None)
  Receive Date: 20060821
  Receipt Date: 20060110
  Transmission Date: 20061208
  Serious: Yes (Other)
  Sender: FDA-Public Use
  Company Number: 473

PATIENT
  Age: 79 Year
  Sex: Female
  Weight: 81.6475 kg

DRUGS (10)
  1. FLUOXETINE [Suspect]
     Indication: DEPRESSION
     Dosage: 40 MG - ORAL
     Route: 048
     Dates: start: 20051116, end: 20051216
  2. .. [Suspect]
     Indication: DEPRESSION
     Dosage: 20 MG - ORAL
     Route: 048
     Dates: start: 20051216, end: 20051221
  3. DIGOXIN [Concomitant]
  4. POTASSIUM CHLORIDE [Concomitant]
  5. COUMADIN [Concomitant]
  6. LASIX [Concomitant]
  7. SYNTHROID [Concomitant]
  8. LISINOPRIL [Concomitant]
  9. TOPROLOL XL [Concomitant]
  10. VICODIN [Concomitant]

REACTIONS (7)
  - ANXIETY [None]
  - ASTHENIA [None]
  - BRADYPHRENIA [None]
  - GAIT DISTURBANCE [None]
  - HYPERKINESIA [None]
  - PAIN [None]
  - PARAESTHESIA [None]
